FAERS Safety Report 7647762-8 (Version None)
Quarter: 2011Q3

REPORT INFORMATION
  Report Type: 
  Country: None (occurrence: None)
  Receive Date: 20110801
  Receipt Date: 20110725
  Transmission Date: 20111222
  Serious: Yes (Death, Other)
  Sender: FDA-Public Use
  Company Number: US-CELGENEUS-163-21880-11062733

PATIENT
  Sex: Female

DRUGS (9)
  1. GABAPENTIN [Concomitant]
     Route: 065
  2. SYNTHROID [Concomitant]
     Route: 065
  3. ACYCLOVIR [Concomitant]
     Route: 065
  4. LISINOPRIL [Concomitant]
     Route: 065
  5. COREG [Concomitant]
     Route: 065
  6. FAMOTIDINE [Concomitant]
     Route: 065
  7. IMDUR [Concomitant]
     Route: 065
  8. FUROSEMIDE [Concomitant]
     Route: 065
  9. REVLIMID [Suspect]
     Dosage: 10 MILLIGRAM
     Route: 048
     Dates: start: 20110513, end: 20110616

REACTIONS (2)
  - DEATH [None]
  - ASTHENIA [None]
